FAERS Safety Report 7156803-6 (Version None)
Quarter: 2010Q4

REPORT INFORMATION
  Report Type: 
  Country: None (occurrence: None)
  Receive Date: 20101214
  Receipt Date: 20101130
  Transmission Date: 20110411
  Serious: No
  Sender: FDA-Public Use
  Company Number: US-PFIZER INC-2010162566

PATIENT
  Sex: Female

DRUGS (2)
  1. ADVIL [Suspect]
     Indication: PAIN
  2. ACTONEL [Concomitant]
     Dosage: UNK
     Dates: start: 20091101, end: 20100101

REACTIONS (1)
  - DRUG INEFFECTIVE [None]
